FAERS Safety Report 9422202 (Version 1)
Quarter: 2013Q3

REPORT INFORMATION
  Report Type: Spontaneous
  Country: US (occurrence: US)
  Receive Date: 20130726
  Receipt Date: 20130726
  Transmission Date: 20140515
  Serious: No
  Sender: FDA-Public Use
  Company Number: US-009507513-1307USA013310

PATIENT
  Age: 74 Year
  Sex: Male

DRUGS (6)
  1. SINEMET [Suspect]
     Indication: DYSPHONIA
     Dosage: LOW DOSES
     Route: 048
  2. SINEMET [Suspect]
     Indication: GAIT DISTURBANCE
  3. SINEMET [Suspect]
     Indication: BALANCE DISORDER
  4. SINEMET [Suspect]
     Indication: BRADYKINESIA
  5. VALPROIC ACID [Concomitant]
     Indication: BIPOLAR DISORDER
     Dosage: 1500 MG DAILY
  6. ENTACAPONE [Concomitant]

REACTIONS (1)
  - Drug ineffective [Unknown]
